FAERS Safety Report 9499279 (Version 1)
Quarter: 2013Q3

REPORT INFORMATION
  Report Type: Spontaneous
  Country: US (occurrence: US)
  Receive Date: 20130905
  Receipt Date: 20130905
  Transmission Date: 20140515
  Serious: No
  Sender: FDA-Public Use
  Company Number: US-BIOGENIDEC-2013BI081039

PATIENT
  Age: 31 Year
  Sex: Male

DRUGS (9)
  1. TYSABRI [Suspect]
     Indication: MULTIPLE SCLEROSIS
     Route: 042
     Dates: start: 20121011
  2. COREG [Concomitant]
     Indication: HYPERTENSION
     Dates: start: 2012
  3. SOLU-MEDROL INFUSIONS [Concomitant]
     Indication: VISUAL IMPAIRMENT
  4. SOLU-MEDROL INFUSIONS [Concomitant]
     Indication: MULTIPLE SCLEROSIS RELAPSE
  5. FOCALIN XR [Concomitant]
     Indication: FATIGUE
  6. LYRICA [Concomitant]
     Indication: NEURALGIA
  7. ^SVSYM^ FENTANYL SL SPRAY [Concomitant]
     Indication: PAIN
  8. KLONOPIN [Concomitant]
  9. HEPARIN FLUSH [Concomitant]
     Indication: CENTRAL VENOUS CATHETERISATION

REACTIONS (10)
  - Nuclear magnetic resonance imaging abnormal [Not Recovered/Not Resolved]
  - Heart rate increased [Not Recovered/Not Resolved]
  - Cognitive disorder [Not Recovered/Not Resolved]
  - Vision blurred [Not Recovered/Not Resolved]
  - Diplopia [Not Recovered/Not Resolved]
  - Influenza like illness [Not Recovered/Not Resolved]
  - Palpitations [Not Recovered/Not Resolved]
  - Bradyphrenia [Not Recovered/Not Resolved]
  - Hypertension [Not Recovered/Not Resolved]
  - Multiple sclerosis [Not Recovered/Not Resolved]
